FAERS Safety Report 17895895 (Version 1)
Quarter: 2020Q2

REPORT INFORMATION
  Report Type: Spontaneous
  Country: US (occurrence: US)
  Receive Date: 20200615
  Receipt Date: 20200615
  Transmission Date: 20200714
  Serious: Yes (Hospitalization)
  Sender: FDA-Public Use
  Company Number: None

PATIENT
  Age: 77 Year
  Sex: Male

DRUGS (23)
  1. FOLBIC [Concomitant]
     Active Substance: CYANOCOBALAMIN\FOLIC ACID\PYRIDOXINE
  2. NITROSTAT [Concomitant]
     Active Substance: NITROGLYCERIN
  3. TRESIBA [Concomitant]
     Active Substance: INSULIN DEGLUDEC
  4. ELIQUIS [Concomitant]
     Active Substance: APIXABAN
  5. JARDIANCE [Concomitant]
     Active Substance: EMPAGLIFLOZIN
  6. PROBIOTIC [Concomitant]
     Active Substance: PROBIOTICS NOS
  7. SINGULAIR [Concomitant]
     Active Substance: MONTELUKAST SODIUM
  8. LASIX [Concomitant]
     Active Substance: FUROSEMIDE
  9. MAGNESIUM [Concomitant]
     Active Substance: MAGNESIUM
  10. ESBRIET [Suspect]
     Active Substance: PIRFENIDONE
     Indication: IDIOPATHIC PULMONARY FIBROSIS
     Dosage: ?          OTHER DOSE:1,2,3 TABS;?
     Route: 048
     Dates: start: 20191101
  11. FERROUS SULFATE. [Concomitant]
     Active Substance: FERROUS SULFATE
  12. VICTOZA [Concomitant]
     Active Substance: LIRAGLUTIDE
  13. IRON [Concomitant]
     Active Substance: IRON
  14. METFORMIN [Concomitant]
     Active Substance: METFORMIN HYDROCHLORIDE
  15. METOPROLOL TARTRATE. [Concomitant]
     Active Substance: METOPROLOL TARTRATE
  16. ZINC. [Concomitant]
     Active Substance: ZINC
  17. CLOBETASOL [Concomitant]
     Active Substance: CLOBETASOL
  18. COQ10 [Concomitant]
     Active Substance: UBIDECARENONE
  19. PROLIA [Concomitant]
     Active Substance: DENOSUMAB
  20. DILTIAZEM. [Concomitant]
     Active Substance: DILTIAZEM
  21. DOXYCYCLINE. [Concomitant]
     Active Substance: DOXYCYCLINE
  22. ALFUZOSIN [Concomitant]
     Active Substance: ALFUZOSIN
  23. CRESTOR [Concomitant]
     Active Substance: ROSUVASTATIN CALCIUM

REACTIONS (2)
  - Photosensitivity reaction [None]
  - Rash [None]
